FAERS Safety Report 5203484-4 (Version None)
Quarter: 2007Q1

REPORT INFORMATION
  Report Type: 
  Country: None (occurrence: None)
  Receive Date: 20070110
  Receipt Date: 20061229
  Transmission Date: 20070707
  Serious: Yes (Life-Threatening, Hospitalization)
  Sender: FDA-Public Use
  Company Number: SE-AVENTIS-200710031EU

PATIENT
  Age: 73 Year
  Sex: Male

DRUGS (10)
  1. LASIX LONG [Suspect]
     Indication: DRUG USE FOR UNKNOWN INDICATION
     Dosage: DOSE: UNKNOWN DOSAGE
     Route: 048
  2. METFORMIN HCL [Suspect]
     Indication: DIABETES MELLITUS
     Dosage: DOSE: UNKNOWN DOSAGE
     Route: 048
  3. DIKLOFENAK [Suspect]
     Indication: GOUT
     Dosage: DOSE: UNKNOWN DOSAGE
     Dates: end: 20060930
  4. ATACAND HCT [Suspect]
     Indication: HYPERTENSION
     Dosage: DOSE: 16/12.5
     Route: 048
  5. TROMBYL [Suspect]
     Route: 048
  6. METOPROLOL SUCCINATE [Suspect]
     Dosage: DOSE: UNKNOWN DOSAGE
     Route: 048
  7. FOLACIN                            /00024201/ [Concomitant]
     Route: 048
  8. BEHEPAN [Concomitant]
     Route: 048
  9. GLYBURIDE [Concomitant]
     Route: 048
  10. LANSOPRAZOLE [Concomitant]
     Route: 048

REACTIONS (7)
  - ANAEMIA [None]
  - BLOOD CREATININE INCREASED [None]
  - BLOOD GLUCOSE DECREASED [None]
  - BLOOD POTASSIUM INCREASED [None]
  - GASTRITIS [None]
  - HEART RATE DECREASED [None]
  - SYNCOPE [None]
